FAERS Safety Report 16587701 (Version 3)
Quarter: 2019Q3

REPORT INFORMATION
  Report Type: Spontaneous
  Country: US (occurrence: US)
  Receive Date: 20190717
  Receipt Date: 20190829
  Transmission Date: 20191004
  Serious: Yes (Other)
  Sender: FDA-Public Use
  Company Number: US-GLAXOSMITHKLINE-US2019GSK127598

PATIENT
  Sex: Female

DRUGS (3)
  1. PREVACID [Suspect]
     Active Substance: LANSOPRAZOLE
     Indication: GASTROOESOPHAGEAL REFLUX DISEASE
     Dosage: 15 MG, QD
     Route: 065
  2. OMEPRAZOLE. [Suspect]
     Active Substance: OMEPRAZOLE
     Indication: PRODUCT USED FOR UNKNOWN INDICATION
     Dosage: 40 MG, QD
     Route: 048
  3. PANTOPRAZOLE [Suspect]
     Active Substance: PANTOPRAZOLE
     Indication: GASTROOESOPHAGEAL REFLUX DISEASE
     Dosage: 40 MG, QD
     Route: 065

REACTIONS (15)
  - Renal failure [Unknown]
  - Renal injury [Unknown]
  - Pollakiuria [Unknown]
  - Renal impairment [Unknown]
  - Tubulointerstitial nephritis [Unknown]
  - Renal cyst [Unknown]
  - Acute kidney injury [Unknown]
  - Renal tubular necrosis [Unknown]
  - Dysuria [Unknown]
  - Renal disorder [Unknown]
  - Chronic kidney disease [Unknown]
  - Urinary incontinence [Unknown]
  - Micturition urgency [Unknown]
  - Haematuria [Unknown]
  - Nephrogenic anaemia [Unknown]
